FAERS Safety Report 21900511 (Version 2)
Quarter: 2023Q1

REPORT INFORMATION
  Report Type: Spontaneous
  Country: US (occurrence: US)
  Receive Date: 20230123
  Receipt Date: 20230123
  Transmission Date: 20230417
  Serious: No
  Sender: FDA-Public Use
  Company Number: US-NOVOPROD-967349

PATIENT
  Sex: Female

DRUGS (2)
  1. OZEMPIC [Suspect]
     Active Substance: SEMAGLUTIDE
     Indication: Product used for unknown indication
     Dosage: 1 MG
     Route: 058
     Dates: start: 2000, end: 202202
  2. OZEMPIC [Suspect]
     Active Substance: SEMAGLUTIDE
     Indication: Product used for unknown indication
     Dosage: 2 MG
     Route: 058
     Dates: start: 20220407

REACTIONS (8)
  - Feeling abnormal [Unknown]
  - Somnolence [Unknown]
  - Influenza like illness [Unknown]
  - Asthenia [Unknown]
  - Dizziness [Unknown]
  - Blood glucose increased [Unknown]
  - Drug ineffective [Unknown]
  - Wrong technique in product usage process [Unknown]
